FAERS Safety Report 4873277-6 (Version None)
Quarter: 2005Q4

REPORT INFORMATION
  Report Type: 
  Country: None (occurrence: None)
  Receive Date: 20051201
  Receipt Date: 20050801
  Transmission Date: 20060501
  Serious: No
  Sender: FDA-Public Use
  Company Number: 2005PV000875

PATIENT
  Age: 53 Year
  Sex: Female
  Weight: 140.6151 kg

DRUGS (10)
  1. BYETTA [Suspect]
     Indication: DIABETES MELLITUS NON-INSULIN-DEPENDENT
     Dosage: 5 MCG; BID; SC
     Route: 058
     Dates: start: 20050720
  2. GLUCOPHAGE XR [Concomitant]
  3. AMARYL [Concomitant]
  4. LOTREL [Concomitant]
  5. ALLEGRA [Concomitant]
  6. ALLEGRA [Concomitant]
  7. THYROID TAB [Concomitant]
  8. SINGULAIR [Concomitant]
  9. RHINOCORT [Concomitant]
  10. IPRATROPIUM BROMIDE [Concomitant]

REACTIONS (3)
  - BLOOD GLUCOSE INCREASED [None]
  - FEELING JITTERY [None]
  - NAUSEA [None]
